FAERS Safety Report 9482547 (Version 1)
Quarter: 2013Q3

REPORT INFORMATION
  Report Type: Spontaneous
  Country: US (occurrence: US)
  Receive Date: 20130828
  Receipt Date: 20130828
  Transmission Date: 20140515
  Serious: No
  Sender: FDA-Public Use
  Company Number: US-SANOFI-AVENTIS-2013SA024416

PATIENT
  Age: 81 Year
  Sex: Male
  Weight: 86.18 kg

DRUGS (4)
  1. ELIGARD [Suspect]
     Indication: PROSTATE CANCER
     Dosage: 45/MG
     Route: 058
     Dates: start: 20130306
  2. FLOMAX [Concomitant]
     Dates: start: 20110506
  3. MEGACE [Concomitant]
     Indication: DECREASED APPETITE
     Dates: start: 20120604
  4. MEGACE [Concomitant]
     Indication: ASTHENIA
     Dates: start: 20120604

REACTIONS (3)
  - Injection site haemorrhage [Recovered/Resolved]
  - Product physical issue [Unknown]
  - Contusion [Recovered/Resolved]
